FAERS Safety Report 24405089 (Version 1)
Quarter: 2024Q4

REPORT INFORMATION
  Report Type: Spontaneous
  Country: CN (occurrence: CN)
  Receive Date: 20241007
  Receipt Date: 20241007
  Transmission Date: 20250115
  Serious: No
  Sender: ROCHE
  Company Number: CN-ROCHE-3506103

PATIENT
  Age: 69 Year
  Sex: Male

DRUGS (6)
  1. GAZYVA [Suspect]
     Active Substance: OBINUTUZUMAB
     Indication: Extranodal marginal zone B-cell lymphoma (MALT type)
     Dosage: D1, 8, 15, GB
     Route: 042
     Dates: start: 20230724
  2. GAZYVA [Suspect]
     Active Substance: OBINUTUZUMAB
     Dosage: D1 GB
     Route: 042
     Dates: start: 20230821
  3. GAZYVA [Suspect]
     Active Substance: OBINUTUZUMAB
     Dosage: D1 GB
     Route: 042
     Dates: start: 20230918
  4. BENDAMUSTINE [Concomitant]
     Active Substance: BENDAMUSTINE
     Indication: Extranodal marginal zone B-cell lymphoma (MALT type)
     Dosage: D1-2 GB
     Route: 042
     Dates: start: 20230724
  5. BENDAMUSTINE [Concomitant]
     Active Substance: BENDAMUSTINE
     Dosage: D1-2 GB
     Route: 042
     Dates: start: 20230821
  6. BENDAMUSTINE [Concomitant]
     Active Substance: BENDAMUSTINE
     Route: 042
     Dates: start: 20230918, end: 20231210

REACTIONS (2)
  - Off label use [Unknown]
  - No adverse event [Unknown]
